FAERS Safety Report 14149729 (Version 9)
Quarter: 2020Q3

REPORT INFORMATION
  Report Type: Spontaneous
  Country: BR (occurrence: BR)
  Receive Date: 20171101
  Receipt Date: 20200910
  Transmission Date: 20201102
  Serious: Yes (Hospitalization, Other)
  Sender: FDA-Public Use
  Company Number: BR-ALEXION-A201711575

PATIENT
  Age: 22 Year
  Sex: Female
  Weight: 54 kg

DRUGS (7)
  1. TACROLIMUS. [Concomitant]
     Active Substance: TACROLIMUS
     Indication: PRODUCT USED FOR UNKNOWN INDICATION
     Dosage: UNK
     Route: 065
  2. SOLIRIS [Suspect]
     Active Substance: ECULIZUMAB
     Dosage: 1200 MG, EVERY 15 DAYS
     Route: 065
  3. NITROFURANTOIN. [Concomitant]
     Active Substance: NITROFURANTOIN
     Indication: PROPHYLAXIS URINARY TRACT INFECTION
     Dosage: UNK
     Route: 048
  4. SOLIRIS [Suspect]
     Active Substance: ECULIZUMAB
     Dosage: 1200 MG, Q2W
     Route: 042
     Dates: start: 20141231
  5. SOLIRIS [Suspect]
     Active Substance: ECULIZUMAB
     Indication: ATYPICAL HAEMOLYTIC URAEMIC SYNDROME
     Dosage: 900 MG, QW
     Route: 042
     Dates: start: 20141203, end: 20141224
  6. SOLIRIS [Suspect]
     Active Substance: ECULIZUMAB
     Dosage: 1200 MG, Q2W
     Route: 042
     Dates: start: 20141231
  7. SOLIRIS [Suspect]
     Active Substance: ECULIZUMAB
     Dosage: 1400 MG, UNK
     Route: 065

REACTIONS (18)
  - Thrombotic microangiopathy [Unknown]
  - Poliovirus test positive [Recovered/Resolved]
  - Immunodeficiency [Recovering/Resolving]
  - Polyomavirus test positive [Unknown]
  - Vaginal reflux [Not Recovered/Not Resolved]
  - Transplant rejection [Recovered/Resolved]
  - Renal transplant [Unknown]
  - Sepsis [Recovered/Resolved]
  - Arterial disorder [Unknown]
  - Papilloma viral infection [Recovering/Resolving]
  - Blood creatinine increased [Unknown]
  - Glomerulosclerosis [Unknown]
  - Renal impairment [Not Recovered/Not Resolved]
  - Cholelithiasis [Recovered/Resolved]
  - Acute respiratory failure [Recovered/Resolved]
  - Proteinuria [Unknown]
  - Incorrect dose administered [Unknown]
  - Urinary tract infection [Recovered/Resolved]

NARRATIVE: CASE EVENT DATE: 201509
